FAERS Safety Report 20113651 (Version 1)
Quarter: 2021Q4

REPORT INFORMATION
  Report Type: Spontaneous
  Country: US (occurrence: US)
  Receive Date: 20211125
  Receipt Date: 20211125
  Transmission Date: 20220303
  Serious: Yes (Hospitalization, Other)
  Sender: FDA-Public Use
  Company Number: US-SEATTLE GENETICS-2021SGN06033

PATIENT
  Sex: Female

DRUGS (1)
  1. TUKYSA [Suspect]
     Active Substance: TUCATINIB
     Indication: Product used for unknown indication
     Dosage: UNK
     Dates: start: 20210910

REACTIONS (11)
  - Gastrointestinal haemorrhage [Unknown]
  - Hypotension [Recovering/Resolving]
  - Tachycardia [Recovering/Resolving]
  - Pulmonary embolism [Unknown]
  - Dehydration [Unknown]
  - Thrombocytopenia [Unknown]
  - Blood lactic acid increased [Unknown]
  - Liver function test increased [Unknown]
  - Nausea [Unknown]
  - Vomiting [Unknown]
  - Diarrhoea [Unknown]
